FAERS Safety Report 7001762-X (Version None)
Quarter: 2010Q3

REPORT INFORMATION
  Report Type: 
  Country: None (occurrence: None)
  Receive Date: 20100920
  Receipt Date: 20100412
  Transmission Date: 20110219
  Serious: Yes (Hospitalization)
  Sender: FDA-Public Use
  Company Number: US-ASTRAZENECA-2009SE13367

PATIENT
  Sex: Male

DRUGS (9)
  1. SEROQUEL [Suspect]
     Route: 048
     Dates: start: 20070720
  2. SEROQUEL [Suspect]
     Route: 048
     Dates: start: 20070803
  3. LOPID [Concomitant]
     Dates: start: 20080412
  4. PRAVASTATIN [Concomitant]
     Dates: start: 20080412
  5. NIASPAN [Concomitant]
     Route: 048
     Dates: start: 20070803
  6. AMBIEN [Concomitant]
     Indication: SLEEP DISORDER
     Dates: start: 20070706
  7. CLONAZEPAM [Concomitant]
     Route: 048
     Dates: start: 20070403
  8. LAMICTAL [Concomitant]
     Route: 048
     Dates: start: 20070403
  9. FLUOXETINE [Concomitant]
     Route: 048
     Dates: start: 20070803

REACTIONS (2)
  - DIABETES MELLITUS [None]
  - DIABETIC KETOACIDOSIS [None]
